FAERS Safety Report 20579685 (Version 1)
Quarter: 2022Q1

REPORT INFORMATION
  Report Type: Spontaneous
  Country: CN (occurrence: CN)
  Receive Date: 20220310
  Receipt Date: 20220310
  Transmission Date: 20220423
  Serious: Yes (Other)
  Sender: FDA-Public Use
  Company Number: CN-ABBVIE-22K-035-4308219-00

PATIENT
  Age: 57 Year
  Sex: Male

DRUGS (6)
  1. VALPROATE SODIUM [Suspect]
     Active Substance: VALPROATE SODIUM
     Indication: Cerebral haemorrhage
     Route: 041
     Dates: start: 20191222, end: 20191222
  2. VALPROATE SODIUM [Suspect]
     Active Substance: VALPROATE SODIUM
     Indication: Brain herniation
  3. PIRACETAM [Suspect]
     Active Substance: PIRACETAM
     Indication: Cerebral haemorrhage
     Route: 042
     Dates: start: 20191221, end: 20191224
  4. PIRACETAM [Suspect]
     Active Substance: PIRACETAM
     Indication: Brain herniation
  5. MANNITOL [Concomitant]
     Active Substance: MANNITOL
     Indication: Cerebral haemorrhage
     Route: 041
     Dates: start: 20191218, end: 20191225
  6. MANNITOL [Concomitant]
     Active Substance: MANNITOL
     Indication: Brain herniation

REACTIONS (1)
  - Transaminases increased [Recovering/Resolving]

NARRATIVE: CASE EVENT DATE: 20191222
